FAERS Safety Report 7782893-3 (Version None)
Quarter: 2011Q3

REPORT INFORMATION
  Report Type: 
  Country: None (occurrence: None)
  Receive Date: 20110928
  Receipt Date: 20110923
  Transmission Date: 20111222
  Serious: Yes (Life-Threatening, Hospitalization)
  Sender: FDA-Public Use
  Company Number: FR-ASTELLAS-2011US006144

PATIENT
  Age: 67 Year
  Sex: Male

DRUGS (7)
  1. CYTARABINE [Suspect]
     Indication: CHEMOTHERAPY
     Dosage: 1 DF, CYCLIC
     Route: 042
     Dates: start: 20110729, end: 20110805
  2. AMIKACIN [Suspect]
     Indication: PRODUCT USED FOR UNKNOWN INDICATION
     Dosage: UNK
     Route: 042
     Dates: start: 20110804, end: 20110806
  3. IDARUBICIN HCL [Suspect]
     Indication: CHEMOTHERAPY
     Dosage: 1 DF, CYCLIC
     Route: 042
     Dates: start: 20110729, end: 20110803
  4. VANCOMYCIN [Suspect]
     Indication: PYREXIA
     Dosage: 2 G, UID/QD
     Route: 042
     Dates: start: 20110729, end: 20110812
  5. AMBISOME [Suspect]
     Indication: PRODUCT USED FOR UNKNOWN INDICATION
     Dosage: 240 MG, UID/QD
     Route: 042
     Dates: start: 20110802, end: 20110812
  6. OFLOXACIN [Suspect]
     Indication: PRODUCT USED FOR UNKNOWN INDICATION
     Dosage: 200 MG, BID
     Route: 042
     Dates: start: 20110731, end: 20110812
  7. TIENAM [Suspect]
     Indication: PYREXIA
     Dosage: 1 G, BID
     Route: 042
     Dates: start: 20110804, end: 20110816

REACTIONS (1)
  - DRUG RASH WITH EOSINOPHILIA AND SYSTEMIC SYMPTOMS [None]
